FAERS Safety Report 15283353 (Version 1)
Quarter: 2018Q3

REPORT INFORMATION
  Report Type: Spontaneous
  Country: US (occurrence: US)
  Receive Date: 20180816
  Receipt Date: 20180816
  Transmission Date: 20181010
  Serious: Yes (Hospitalization)
  Sender: FDA-Public Use
  Company Number: US-PFIZER INC-2018328061

PATIENT
  Age: 5 Decade
  Sex: Male

DRUGS (1)
  1. SUTENT [Suspect]
     Active Substance: SUNITINIB MALATE
     Indication: POST PROCEDURAL COMPLICATION
     Dosage: 50 MG, CYCLIC (5 CYCLES OF SUTENT , 4 WEEKS ON DRUG, 2 WEEKS OFF)

REACTIONS (1)
  - Blood potassium increased [Unknown]
